FAERS Safety Report 4725157-4 (Version None)
Quarter: 2005Q3

REPORT INFORMATION
  Report Type: 
  Country: None (occurrence: None)
  Receive Date: 20050725
  Receipt Date: 20050705
  Transmission Date: 20060218
  Serious: Yes (Other)
  Sender: FDA-Public Use
  Company Number: US_0507120116

PATIENT
  Age: 65 Year
  Sex: Male
  Weight: 104 kg

DRUGS (5)
  1. STRATTERA [Suspect]
     Dosage: 80 MG
  2. CARDURA (DOXAZOSIN   /  00639301/) [Concomitant]
  3. LIPITOR [Concomitant]
  4. ZESTORETIC [Concomitant]
  5. TOPAMAX [Concomitant]

REACTIONS (4)
  - ANAESTHETIC COMPLICATION [None]
  - BLOOD PRESSURE DECREASED [None]
  - SURGERY [None]
  - THERAPY NON-RESPONDER [None]
